FAERS Safety Report 10531017 (Version 1)
Quarter: 2014Q4

REPORT INFORMATION
  Report Type: Report from Study
  Country: US (occurrence: US)
  Receive Date: 20141021
  Receipt Date: 20141021
  Transmission Date: 20150528
  Serious: Yes (Other)
  Sender: FDA-Public Use
  Company Number: US-ABBVIE-14K-163-1295381-00

PATIENT
  Age: 62 Year
  Sex: Female

DRUGS (30)
  1. HUMIRA [Suspect]
     Active Substance: ADALIMUMAB
     Route: 065
     Dates: start: 20120110, end: 20130325
  2. PREDNISONE. [Concomitant]
     Active Substance: PREDNISONE
  3. PREDNISONE. [Concomitant]
     Active Substance: PREDNISONE
     Dates: start: 2012, end: 20120710
  4. LOSARTAN AND HYDROCHLOROTHIAZIDE [Concomitant]
     Active Substance: HYDROCHLOROTHIAZIDE\LOSARTAN POTASSIUM
     Indication: PRODUCT USED FOR UNKNOWN INDICATION
     Dosage: 100-12.5 MG
  5. PREDNISONE. [Concomitant]
     Active Substance: PREDNISONE
     Dates: start: 20120710
  6. CALCIUM [Concomitant]
     Active Substance: CALCIUM
     Indication: PRODUCT USED FOR UNKNOWN INDICATION
  7. HUMIRA [Suspect]
     Active Substance: ADALIMUMAB
     Route: 065
     Dates: start: 201112, end: 20120110
  8. ARAVA [Concomitant]
     Active Substance: LEFLUNOMIDE
     Indication: PRODUCT USED FOR UNKNOWN INDICATION
  9. PREDNISONE. [Concomitant]
     Active Substance: PREDNISONE
     Dates: start: 20130402, end: 20130523
  10. VITAMIN C [Concomitant]
     Active Substance: ASCORBIC ACID
     Indication: PRODUCT USED FOR UNKNOWN INDICATION
  11. PREDNISONE. [Concomitant]
     Active Substance: PREDNISONE
     Dates: start: 20130523
  12. PREDNISONE. [Concomitant]
     Active Substance: PREDNISONE
     Dates: start: 20130716
  13. PREDNISONE. [Concomitant]
     Active Substance: PREDNISONE
     Dates: start: 20131106
  14. CRESTOR [Concomitant]
     Active Substance: ROSUVASTATIN CALCIUM
     Indication: PRODUCT USED FOR UNKNOWN INDICATION
  15. HUMIRA [Suspect]
     Active Substance: ADALIMUMAB
     Indication: RHEUMATOID ARTHRITIS
     Route: 065
     Dates: start: 20110705, end: 201112
  16. PREDNISONE. [Concomitant]
     Active Substance: PREDNISONE
     Dates: end: 20120110
  17. PREDNISONE. [Concomitant]
     Active Substance: PREDNISONE
     Dates: start: 20121211
  18. HUMIRA [Suspect]
     Active Substance: ADALIMUMAB
     Route: 065
     Dates: start: 20130402, end: 20130523
  19. HUMIRA [Suspect]
     Active Substance: ADALIMUMAB
     Route: 065
     Dates: start: 20130523, end: 20130827
  20. PREDNISONE. [Concomitant]
     Active Substance: PREDNISONE
     Dates: start: 20120807
  21. PREDNISONE. [Concomitant]
     Active Substance: PREDNISONE
     Dates: start: 20121002
  22. PREDNISONE. [Concomitant]
     Active Substance: PREDNISONE
     Dates: end: 20130402
  23. FISH OIL [Concomitant]
     Active Substance: FISH OIL
     Indication: PRODUCT USED FOR UNKNOWN INDICATION
  24. FAMOTIDINE. [Concomitant]
     Active Substance: FAMOTIDINE
     Indication: PRODUCT USED FOR UNKNOWN INDICATION
  25. PREDNISONE. [Concomitant]
     Active Substance: PREDNISONE
     Indication: PRODUCT USED FOR UNKNOWN INDICATION
  26. PREDNISONE. [Concomitant]
     Active Substance: PREDNISONE
     Dates: end: 20131106
  27. HUMIRA [Suspect]
     Active Substance: ADALIMUMAB
     Route: 065
     Dates: start: 20130827
  28. PREDNISONE. [Concomitant]
     Active Substance: PREDNISONE
  29. WOMEN^S MULTI [Concomitant]
     Indication: PRODUCT USED FOR UNKNOWN INDICATION
  30. COQU-10 [Concomitant]
     Indication: PRODUCT USED FOR UNKNOWN INDICATION

REACTIONS (10)
  - Tendonitis [Unknown]
  - Joint injury [Unknown]
  - Device issue [Unknown]
  - Pain in extremity [Unknown]
  - Rheumatoid arthritis [Recovered/Resolved]
  - Pain [Recovering/Resolving]
  - Rotator cuff syndrome [Recovering/Resolving]
  - Rheumatoid arthritis [Recovered/Resolved]
  - Rheumatoid arthritis [Recovered/Resolved]
  - Muscle injury [Unknown]

NARRATIVE: CASE EVENT DATE: 2011
